FAERS Safety Report 18821353 (Version 1)
Quarter: 2021Q1

REPORT INFORMATION
  Report Type: Spontaneous
  Country: AT (occurrence: AT)
  Receive Date: 20210201
  Receipt Date: 20210201
  Transmission Date: 20210419
  Serious: Yes (Death)
  Sender: FDA-Public Use
  Company Number: AT-PFIZER INC-2021074305

PATIENT
  Age: 75 Year
  Sex: Female

DRUGS (1)
  1. DAURISMO [Suspect]
     Active Substance: GLASDEGIB
     Indication: ACUTE MYELOID LEUKAEMIA
     Dosage: STARTED THERAPY A FEW WEEKS AGO

REACTIONS (2)
  - Neoplasm progression [Unknown]
  - Cerebral haemorrhage [Fatal]
